FAERS Safety Report 7220719-7 (Version None)
Quarter: 2011Q1

REPORT INFORMATION
  Report Type: 
  Country: None (occurrence: None)
  Receive Date: 20110111
  Receipt Date: 20110108
  Transmission Date: 20110831
  Serious: Yes (Other)
  Sender: FDA-Public Use
  Company Number: US-PFIZER INC-2011005081

PATIENT
  Sex: Female
  Weight: 87.528 kg

DRUGS (8)
  1. GLIPIZIDE [Concomitant]
     Dosage: UNK
  2. DOXAZOSIN [Concomitant]
     Dosage: UNK
  3. PLAVIX [Concomitant]
     Dosage: 75 MG, UNK
  4. LISINOPRIL [Concomitant]
     Dosage: UNK
  5. CARVEDILOL [Concomitant]
     Dosage: 6.25 MG, UNK
  6. LIPITOR [Suspect]
     Indication: BLOOD CHOLESTEROL INCREASED
     Dosage: 40 MG, 1X/DAY
     Route: 048
     Dates: start: 20101226
  7. ACETYLSALICYLIC ACID [Concomitant]
     Dosage: UNK
  8. RENOVA [Concomitant]
     Dosage: UNK

REACTIONS (2)
  - MUSCLE SPASMS [None]
  - MYOCARDIAL INFARCTION [None]
